FAERS Safety Report 7529570-1 (Version None)
Quarter: 2011Q2

REPORT INFORMATION
  Report Type: 
  Country: None (occurrence: None)
  Receive Date: 20110531
  Receipt Date: 20110531
  Transmission Date: 20111010
  Serious: Yes (Other)
  Sender: FDA-Public Use
  Company Number: AUR-APL-2011-01429

PATIENT
  Age: 83 Year
  Sex: Male

DRUGS (1)
  1. SIMVASTATIN [Suspect]
     Indication: BLOOD CHOLESTEROL
     Dates: start: 20070101, end: 20100101

REACTIONS (7)
  - CONDITION AGGRAVATED [None]
  - COUGH [None]
  - RASH [None]
  - HYPERSENSITIVITY [None]
  - MYALGIA [None]
  - ARTHRITIS [None]
  - PAIN [None]
